FAERS Safety Report 9460591 (Version 2)
Quarter: 2013Q3

REPORT INFORMATION
  Report Type: Spontaneous
  Country: IT (occurrence: FR)
  Receive Date: 20130815
  Receipt Date: 20130829
  Transmission Date: 20140515
  Serious: Yes (Hospitalization)
  Sender: FDA-Public Use
  Company Number: FR-FRI-1000047651

PATIENT
  Age: 72 Year
  Sex: Male

DRUGS (8)
  1. NEBIVOLOL [Suspect]
     Indication: CARDIOMYOPATHY
     Dosage: 5 MG
     Route: 048
     Dates: end: 20130513
  2. OMEXEL [Suspect]
     Indication: BENIGN PROSTATIC HYPERPLASIA
     Dosage: 0.4 MG
     Route: 048
     Dates: start: 201301, end: 20130513
  3. BURINEX [Suspect]
     Indication: CARDIOMYOPATHY
     Dosage: 5 MG
     Route: 048
     Dates: end: 20130514
  4. HYTACAND [Suspect]
     Indication: CARDIOMYOPATHY
     Dosage: 16 MG/12.5 MG
     Route: 048
     Dates: end: 20130514
  5. CORDARONE [Suspect]
     Indication: ATRIAL FIBRILLATION
     Dosage: 200 MG
     Route: 048
  6. LEVOTHYROX [Concomitant]
     Indication: HYPOTHYROIDISM
     Dosage: 75 MCG
     Route: 048
  7. PREVISCAN [Concomitant]
     Indication: ATRIAL FIBRILLATION
     Dosage: 5 MG
     Route: 048
  8. MOPRAL [Concomitant]
     Dosage: 10 MG
     Route: 048

REACTIONS (4)
  - Syncope [Recovered/Resolved]
  - Monoparesis [Recovered/Resolved]
  - Bradycardia [Recovered/Resolved]
  - Dysaesthesia [Recovered/Resolved]
